FAERS Safety Report 13920893 (Version 7)
Quarter: 2019Q3

REPORT INFORMATION
  Report Type: Spontaneous
  Country: JP (occurrence: JP)
  Receive Date: 20170830
  Receipt Date: 20190708
  Transmission Date: 20191004
  Serious: Yes (Hospitalization, Other)
  Sender: FDA-Public Use
  Company Number: JP-SHIRE-JP201719923

PATIENT

DRUGS (11)
  1. FEIBA NF [Suspect]
     Active Substance: ANTI-INHIBITOR COAGULANT COMPLEX
     Indication: HAEMOSTASIS
     Dosage: 6000 INTERNATIONAL UNIT, QOD
     Route: 042
     Dates: start: 20170130
  2. NOVOSEVEN [Concomitant]
     Active Substance: COAGULATION FACTOR VIIA RECOMBINANT HUMAN
     Dosage: UNK
     Route: 042
     Dates: start: 20170628, end: 201707
  3. FEIBA NF [Suspect]
     Active Substance: ANTI-INHIBITOR COAGULANT COMPLEX
     Dosage: 6000 INTERNATIONAL UNIT, 3X A WEEK
     Route: 042
     Dates: start: 20170704, end: 20170830
  4. FEIBA NF [Suspect]
     Active Substance: ANTI-INHIBITOR COAGULANT COMPLEX
     Dosage: 100 IU, 2X A WEEK
     Route: 042
     Dates: start: 20170831
  5. NOVOEIGHT [Suspect]
     Active Substance: ANTIHEMOPHILIC FACTOR, HUMAN RECOMBINANT
     Indication: FACTOR VIII DEFICIENCY
     Dosage: 6000 IU, 3X A WEEK
     Route: 042
     Dates: start: 20170607, end: 20170628
  6. FEIBA NF [Suspect]
     Active Substance: ANTI-INHIBITOR COAGULANT COMPLEX
     Dosage: 6000 INTERNATIONAL UNIT, 3X A WEEK
     Route: 042
     Dates: start: 20170509, end: 20170628
  7. NOVOEIGHT [Suspect]
     Active Substance: ANTIHEMOPHILIC FACTOR, HUMAN RECOMBINANT
     Indication: IMMUNE TOLERANCE INDUCTION
  8. NOVOEIGHT [Suspect]
     Active Substance: ANTIHEMOPHILIC FACTOR, HUMAN RECOMBINANT
     Indication: HAEMOSTASIS
     Dosage: 6000 IU, 3X A WEEK
     Route: 042
     Dates: start: 20170704
  9. FEIBA NF [Suspect]
     Active Substance: ANTI-INHIBITOR COAGULANT COMPLEX
     Indication: FACTOR VIII DEFICIENCY
     Dosage: UNK
     Route: 042
     Dates: end: 20190624
  10. NOVOSEVEN [Concomitant]
     Active Substance: COAGULATION FACTOR VIIA RECOMBINANT HUMAN
     Indication: HAEMOSTASIS
     Dosage: UNK
     Route: 042
     Dates: start: 20170126, end: 20170130
  11. NOVOSEVEN [Concomitant]
     Active Substance: COAGULATION FACTOR VIIA RECOMBINANT HUMAN
     Dosage: UNK
     Route: 042
     Dates: start: 201705

REACTIONS (18)
  - Haemorrhage subcutaneous [Recovering/Resolving]
  - Muscle haemorrhage [Recovering/Resolving]
  - Subcutaneous haematoma [Recovering/Resolving]
  - Joint swelling [Unknown]
  - Joint contracture [Recovered/Resolved with Sequelae]
  - Melaena [Recovering/Resolving]
  - Vascular device infection [Recovering/Resolving]
  - Spondylitis [Recovering/Resolving]
  - Haemarthrosis [Recovering/Resolving]
  - Factor VIII inhibition [Not Recovered/Not Resolved]
  - Haemarthrosis [Recovering/Resolving]
  - Haemorrhage [Recovering/Resolving]
  - Feeling abnormal [Unknown]
  - Loss of personal independence in daily activities [Recovered/Resolved with Sequelae]
  - Injury [Unknown]
  - Inguinal hernia [Unknown]
  - Intervertebral discitis [Recovering/Resolving]
  - Staphylococcal infection [Recovering/Resolving]

NARRATIVE: CASE EVENT DATE: 2017
